FAERS Safety Report 13968560 (Version 11)
Quarter: 2018Q1

REPORT INFORMATION
  Report Type: Report from Study
  Country: BE (occurrence: BE)
  Receive Date: 20170914
  Receipt Date: 20180314
  Transmission Date: 20180508
  Serious: Yes (Hospitalization)
  Sender: FDA-Public Use
  Company Number: BE-SA-2017SA000706

PATIENT
  Age: 61 Year
  Sex: Female
  Weight: 59 kg

DRUGS (15)
  1. ACYCLOVIR. [Concomitant]
     Active Substance: ACYCLOVIR
     Dosage: FIVE TIMES A DAY
     Route: 065
  2. MONTELUKAST [Concomitant]
     Active Substance: MONTELUKAST SODIUM
     Route: 065
     Dates: start: 2006
  3. VIRGAN [Concomitant]
     Active Substance: GANCICLOVIR
     Route: 065
  4. CREMICORT-H [Concomitant]
     Route: 065
     Dates: start: 201605
  5. DE ICOL [Concomitant]
     Route: 065
  6. RUPTON [Concomitant]
     Route: 065
     Dates: start: 2016
  7. EUMOVATE [Concomitant]
     Active Substance: CLOBETASONE BUTYRATE
     Route: 065
     Dates: start: 201605
  8. SERETIDE [Concomitant]
     Active Substance: FLUTICASONE PROPIONATE\SALMETEROL XINAFOATE
     Route: 065
     Dates: start: 2006
  9. SPIRIVA [Concomitant]
     Active Substance: TIOTROPIUM BROMIDE MONOHYDRATE
     Route: 065
     Dates: start: 2006
  10. TRAFLOXAL [Concomitant]
     Route: 065
     Dates: start: 20170706
  11. SAR231893 [Suspect]
     Active Substance: DUPILUMAB
     Indication: DERMATITIS ATOPIC
     Route: 058
     Dates: start: 201611, end: 20170907
  12. SAR231893 [Suspect]
     Active Substance: DUPILUMAB
     Indication: DERMATITIS ATOPIC
     Route: 058
     Dates: start: 201611, end: 20170907
  13. SAR231893 [Suspect]
     Active Substance: DUPILUMAB
     Indication: DERMATITIS ATOPIC
     Route: 058
     Dates: start: 20161027, end: 20161027
  14. PROTOPIC [Concomitant]
     Active Substance: TACROLIMUS
     Route: 065
     Dates: start: 201610
  15. BRIVUDINE [Concomitant]
     Active Substance: BRIVUDINE
     Route: 065

REACTIONS (3)
  - Ophthalmic herpes simplex [Recovered/Resolved]
  - Ophthalmic herpes simplex [Recovering/Resolving]
  - Superinfection bacterial [Recovered/Resolved]

NARRATIVE: CASE EVENT DATE: 201611
